FAERS Safety Report 18057020 (Version 1)
Quarter: 2020Q3

REPORT INFORMATION
  Report Type: Spontaneous
  Country: US (occurrence: US)
  Receive Date: 20200722
  Receipt Date: 20200722
  Transmission Date: 20201103
  Serious: Yes (Other)
  Sender: FDA-Public Use
  Company Number: US-GILEAD-2020-0484454

PATIENT
  Age: 33 Year
  Sex: Male
  Weight: 88.44 kg

DRUGS (17)
  1. TIVICAY [Concomitant]
     Active Substance: DOLUTEGRAVIR SODIUM
  2. ACYCLOVIR [ACICLOVIR] [Concomitant]
     Active Substance: ACYCLOVIR
  3. ADVIL [IBUPROFEN] [Concomitant]
     Active Substance: IBUPROFEN
  4. VANCOMYCIN [Concomitant]
     Active Substance: VANCOMYCIN
  5. VIREAD [Suspect]
     Active Substance: TENOFOVIR DISOPROXIL FUMARATE
     Indication: HIV INFECTION
     Dosage: UNK
     Route: 065
     Dates: start: 20040120, end: 20050519
  6. ATRIPLA [Suspect]
     Active Substance: EFAVIRENZ\EMTRICITABINE\TENOFOVIR DISOPROXIL FUMARATE
     Indication: HIV INFECTION
     Dosage: UNK
     Route: 065
     Dates: start: 20061121, end: 20110813
  7. NORVIR [Concomitant]
     Active Substance: RITONAVIR
  8. SUSTIVA [Concomitant]
     Active Substance: EFAVIRENZ
  9. LEVAQUIN [Concomitant]
     Active Substance: LEVOFLOXACIN
  10. TRUVADA [Suspect]
     Active Substance: EMTRICITABINE\TENOFOVIR DISOPROXIL FUMARATE
     Indication: HIV INFECTION
     Dosage: UNK
     Route: 065
     Dates: start: 20050630, end: 20061030
  11. COMBIVIR [Concomitant]
     Active Substance: LAMIVUDINE\ZIDOVUDINE
  12. EPIVIR [Concomitant]
     Active Substance: LAMIVUDINE
  13. ALDARA [Concomitant]
     Active Substance: IMIQUIMOD
  14. AZTREONAM. [Concomitant]
     Active Substance: AZTREONAM
  15. COMPLERA [Suspect]
     Active Substance: EMTRICITABINE\RILPIVIRINE HYDROCHLORIDE\TENOFOVIR DISOPROXIL FUMARATE
     Indication: HIV INFECTION
     Dosage: UNK
     Route: 065
     Dates: start: 20120904, end: 20131119
  16. ABACAVIR. [Concomitant]
     Active Substance: ABACAVIR
  17. AZASITE [Concomitant]
     Active Substance: AZITHROMYCIN MONOHYDRATE

REACTIONS (5)
  - Renal failure [Not Recovered/Not Resolved]
  - Bone density decreased [Not Recovered/Not Resolved]
  - Pain [Recovered/Resolved]
  - Chronic kidney disease [Not Recovered/Not Resolved]
  - Emotional distress [Recovered/Resolved]

NARRATIVE: CASE EVENT DATE: 20090212
